FAERS Safety Report 5607397-5 (Version None)
Quarter: 2008Q1

REPORT INFORMATION
  Report Type: 
  Country: None (occurrence: None)
  Receive Date: 20080128
  Receipt Date: 20080128
  Transmission Date: 20080703
  Serious: Yes (Hospitalization)
  Sender: FDA-Public Use
  Company Number: None

PATIENT
  Sex: Male
  Weight: 92 kg

DRUGS (1)
  1. TEMOZOLOMIDE [Suspect]
     Dosage: 1950 MG

REACTIONS (3)
  - INCISION SITE COMPLICATION [None]
  - INCISION SITE PAIN [None]
  - WOUND INFECTION [None]
